FAERS Safety Report 8369422-0 (Version None)
Quarter: 2012Q2

REPORT INFORMATION
  Report Type: 
  Country: None (occurrence: None)
  Receive Date: 20120516
  Receipt Date: 20120516
  Transmission Date: 20120825
  Serious: Yes (Other)
  Sender: FDA-Public Use
  Company Number: None

PATIENT
  Age: 66 Year
  Sex: Female
  Weight: 63.5036 kg

DRUGS (1)
  1. LOSARTAN POTASSIUM [Suspect]

REACTIONS (3)
  - PANCREATITIS [None]
  - FEELING ABNORMAL [None]
  - PAIN [None]
